FAERS Safety Report 9170570 (Version 1)
Quarter: 2013Q1

REPORT INFORMATION
  Report Type: Spontaneous
  Country: AU (occurrence: None)
  Receive Date: 20130312
  Receipt Date: 20130312
  Transmission Date: 20140127
  Serious: Yes (Hospitalization)
  Sender: FDA-Public Use
  Company Number: USA/AUS/13/0028406

PATIENT
  Age: 84 Year
  Sex: Male

DRUGS (11)
  1. SIMVASTATIN (SIMVASTATIN) [Suspect]
     Indication: PRODUCT USED FOR UNKNOWN INDICATION
  2. COLCHICINE (COLCHICINE) [Suspect]
  3. AMLODIPINE BESYLATE (AMLODIPINE BESILATE) [Concomitant]
  4. CLOPIDOGREL (CLOPIDOGREL) [Concomitant]
  5. PREDNISOLONE (PREDNISOLONE) [Concomitant]
  6. FLUTICASONE-SALMETEROL (FLUTICASONE W/SALMETEROL) [Concomitant]
  7. EZETIMBE (EZETIMEBE) [Concomitant]
  8. IRBESARTAN (IBESARTAN) [Concomitant]
  9. HYDROCHLOROTHIAZIDE (HYDROCHLOROTHIAZIDE) [Concomitant]
  10. RABEPRAZOLE (RABEPRAZOLE) [Concomitant]
  11. OXYCODONE (OXYCODONE) [Concomitant]

REACTIONS (6)
  - Gout [None]
  - Myalgia [None]
  - Muscular weakness [None]
  - Dysphagia [None]
  - Myoglobinuria [None]
  - Colonic pseudo-obstruction [None]
